FAERS Safety Report 5565792-7 (Version None)
Quarter: 2007Q4

REPORT INFORMATION
  Report Type: 
  Country: None (occurrence: None)
  Receive Date: 20071213
  Receipt Date: 20071129
  Transmission Date: 20080405
  Serious: Yes (Other)
  Sender: FDA-Public Use
  Company Number: 021258

PATIENT
  Age: 20 Year
  Sex: Female

DRUGS (1)
  1. CLARAVIS [Suspect]
     Dosage: 40 MG, BID ORAL
     Route: 048
     Dates: start: 20071030, end: 20071113

REACTIONS (3)
  - DRUG EXPOSURE DURING PREGNANCY [None]
  - ORAL SURGERY [None]
  - PREGNANCY ON ORAL CONTRACEPTIVE [None]
